FAERS Safety Report 6094829-4 (Version None)
Quarter: 2009Q1

REPORT INFORMATION
  Report Type: 
  Country: None (occurrence: None)
  Receive Date: 20090225
  Receipt Date: 20080716
  Transmission Date: 20090719
  Serious: Yes (Hospitalization)
  Sender: FDA-Public Use
  Company Number: 2008MB000082

PATIENT
  Age: 32 Year
  Sex: Female
  Weight: 88.4514 kg

DRUGS (3)
  1. KEFLEX [Suspect]
     Indication: ANTIBIOTIC PROPHYLAXIS
     Dosage: 750 MG;BID
     Dates: start: 20080516
  2. GLEEVEC [Concomitant]
  3. METOCLPRAMIDE [Concomitant]

REACTIONS (1)
  - DRUG HYPERSENSITIVITY [None]
